FAERS Safety Report 20004632 (Version 2)
Quarter: 2023Q2

REPORT INFORMATION
  Report Type: Report from Study
  Country: US (occurrence: US)
  Receive Date: 20211027
  Receipt Date: 20230613
  Transmission Date: 20230722
  Serious: Yes (Hospitalization)
  Sender: FDA-Public Use
  Company Number: US-TAKEDA-2021TUS066436

PATIENT
  Sex: Male
  Weight: 84.9 kg

DRUGS (21)
  1. HUMAN IMMUNOGLOBULIN G [Suspect]
     Active Substance: HUMAN IMMUNOGLOBULIN G
     Indication: Immunodeficiency common variable
     Dosage: 30 GRAM, Q2WEEKS
     Route: 042
     Dates: start: 20210624
  2. HUMAN IMMUNOGLOBULIN G [Suspect]
     Active Substance: HUMAN IMMUNOGLOBULIN G
     Dosage: 30 GRAM, MONTHLY
     Route: 042
  3. FAMCICLOVIR [Concomitant]
     Active Substance: FAMCICLOVIR
  4. MELATONIN [Concomitant]
     Active Substance: MELATONIN
  5. RITUXAN [Concomitant]
     Active Substance: RITUXIMAB
  6. BACTRIM [Concomitant]
     Active Substance: SULFAMETHOXAZOLE\TRIMETHOPRIM
  7. PREDNISONE [Concomitant]
     Active Substance: PREDNISONE
  8. MIRALAX [Concomitant]
     Active Substance: POLYETHYLENE GLYCOL 3350
  9. TACROLIMUS [Concomitant]
     Active Substance: TACROLIMUS
  10. ALLOPURINOL [Concomitant]
     Active Substance: ALLOPURINOL
  11. FLUCONAZOLE [Concomitant]
     Active Substance: FLUCONAZOLE
  12. FLOMAX [Concomitant]
     Active Substance: TAMSULOSIN HYDROCHLORIDE
  13. LIPITOR [Concomitant]
     Active Substance: ATORVASTATIN CALCIUM
  14. AVODART [Concomitant]
     Active Substance: DUTASTERIDE
  15. SENNA-S [Concomitant]
     Active Substance: DOCUSATE SODIUM\SENNOSIDES
  16. Ursodiolisin [Concomitant]
  17. FIBER [Concomitant]
  18. MAGOX [Concomitant]
  19. COLACE [Concomitant]
     Active Substance: DOCUSATE SODIUM
  20. JAKAFI [Concomitant]
     Active Substance: RUXOLITINIB
  21. ELIQUIS [Concomitant]
     Active Substance: APIXABAN

REACTIONS (2)
  - Hospitalisation [Unknown]
  - Upper respiratory tract infection [Not Recovered/Not Resolved]
